FAERS Safety Report 22211287 (Version 1)
Quarter: 2023Q2

REPORT INFORMATION
  Report Type: Spontaneous
  Country: US (occurrence: US)
  Receive Date: 20230414
  Receipt Date: 20230414
  Transmission Date: 20230722
  Serious: No
  Sender: FDA-Public Use
  Company Number: US-ALKERMES INC.-ALK-2022-002235

PATIENT
  Age: 17 Year
  Sex: Female

DRUGS (8)
  1. VIVITROL [Suspect]
     Active Substance: NALTREXONE
     Indication: Substance abuse
     Dosage: NO DRUG ADMINISTERED
     Route: 030
     Dates: start: 20220509
  2. VIVITROL [Suspect]
     Active Substance: NALTREXONE
     Indication: Product use in unapproved indication
  3. VIVITROL [Suspect]
     Active Substance: NALTREXONE
     Indication: Product use in unapproved indication
  4. VIVITROL [Suspect]
     Active Substance: NALTREXONE
     Indication: Alcoholism
  5. NALTREXONE [Concomitant]
     Active Substance: NALTREXONE
     Indication: Substance abuse
     Dosage: UNK
     Route: 048
  6. NALTREXONE [Concomitant]
     Active Substance: NALTREXONE
     Indication: Nicotine dependence
  7. NALTREXONE [Concomitant]
     Active Substance: NALTREXONE
     Indication: Drug dependence
  8. NALTREXONE [Concomitant]
     Active Substance: NALTREXONE
     Indication: Alcoholism

REACTIONS (5)
  - Off label use [Not Recovered/Not Resolved]
  - Presyncope [Recovered/Resolved]
  - Injection site reaction [Recovered/Resolved]
  - Injection site pain [Recovered/Resolved]
  - Needle issue [Recovered/Resolved]

NARRATIVE: CASE EVENT DATE: 20220509
